FAERS Safety Report 9533902 (Version 1)
Quarter: 2013Q2

REPORT INFORMATION
  Report Type: Spontaneous
  Country: US (occurrence: None)
  Receive Date: 20130423
  Receipt Date: 20130423
  Transmission Date: 20140414
  Serious: Yes (Death, Life-Threatening, Disabling)
  Sender: FDA-Public Use
  Company Number: 1211USA007675

PATIENT
  Age: 56 Year
  Sex: Male

DRUGS (1)
  1. TEMODAR (TEMOZOLOMIDE) CAPSULE, 100MG [Suspect]
     Indication: NEOPLASM MALIGNANT
     Dosage: 100 MG DAILY FOR 5 DAYS EVERY MONTH, 1 STANDARD DOSE OF 5, ORAL
     Dates: start: 201104

REACTIONS (1)
  - Death [None]
